FAERS Safety Report 6965365-5 (Version None)
Quarter: 2010Q3

REPORT INFORMATION
  Report Type: 
  Country: None (occurrence: None)
  Receive Date: 20100903
  Receipt Date: 20100827
  Transmission Date: 20110219
  Serious: Yes (Death, Hospitalization)
  Sender: FDA-Public Use
  Company Number: A0799796B

PATIENT
  Sex: Female
  Weight: 56.8 kg

DRUGS (1)
  1. OFATUMUMAB [Suspect]
     Dosage: 2300MG CUMULATIVE DOSE
     Route: 042
     Dates: start: 20090709

REACTIONS (6)
  - DYSPNOEA [None]
  - FEBRILE NEUTROPENIA [None]
  - PNEUMONIA [None]
  - PYREXIA [None]
  - RESPIRATORY FAILURE [None]
  - SEPTIC SHOCK [None]
